FAERS Safety Report 9958753 (Version 2)
Quarter: 2014Q1

REPORT INFORMATION
  Report Type: Report from Study
  Country: US (occurrence: US)
  Receive Date: 20140305
  Receipt Date: 20140305
  Transmission Date: 20141002
  Serious: No
  Sender: FDA-Public Use
  Company Number: US-ABBVIE-13P-163-1077358-00

PATIENT
  Age: 44 Year
  Sex: Male

DRUGS (9)
  1. HUMIRA [Suspect]
     Indication: COLITIS ULCERATIVE
     Route: 058
     Dates: start: 20130405, end: 20130405
  2. HUMIRA [Suspect]
     Dosage: 80 MG
     Dates: start: 20130419, end: 20130419
  3. HUMIRA [Suspect]
     Dates: start: 20130503
  4. AMLODIPINE [Concomitant]
     Indication: BLOOD PRESSURE
  5. NEXIUM [Concomitant]
     Indication: GASTROOESOPHAGEAL REFLUX DISEASE
  6. SINGULAIR [Concomitant]
     Indication: HYPERSENSITIVITY
  7. DOXYCYCLINE [Concomitant]
     Indication: ACNE
  8. PROZAC [Concomitant]
     Indication: STRESS
  9. MULTIVITAMIN [Concomitant]
     Indication: PRODUCT USED FOR UNKNOWN INDICATION

REACTIONS (1)
  - Drug ineffective [Not Recovered/Not Resolved]
